FAERS Safety Report 5975879-2 (Version None)
Quarter: 2008Q4

REPORT INFORMATION
  Report Type: 
  Country: None (occurrence: None)
  Receive Date: 20081202
  Receipt Date: 20081128
  Transmission Date: 20090506
  Serious: Yes (Hospitalization)
  Sender: FDA-Public Use
  Company Number: B0548230A

PATIENT
  Age: 76 Year
  Sex: Female

DRUGS (5)
  1. ZANTAC [Suspect]
     Indication: PREMEDICATION
     Route: 042
     Dates: start: 20070501
  2. PACLITAXEL [Concomitant]
     Route: 065
  3. DIPHENHYDRAMINE HYDROCHLORIDE [Concomitant]
     Indication: PREMEDICATION
     Route: 048
     Dates: start: 20070501
  4. AZASETRON HYDROCHLORIDE [Concomitant]
     Indication: PREMEDICATION
     Route: 042
     Dates: start: 20070501
  5. DEXAMETHASONE [Concomitant]
     Indication: PREMEDICATION
     Route: 042
     Dates: start: 20070501

REACTIONS (1)
  - RESPIRATORY ARREST [None]
